FAERS Safety Report 15179461 (Version 1)
Quarter: 2018Q3

REPORT INFORMATION
  Report Type: Report from Study
  Country: US (occurrence: US)
  Receive Date: 20180723
  Receipt Date: 20180723
  Transmission Date: 20181010
  Serious: Yes (Other)
  Sender: FDA-Public Use
  Company Number: US-EMD SERONO-E2B_90050634

PATIENT
  Age: 50 Year
  Sex: Female
  Weight: 74 kg

DRUGS (3)
  1. PERCOCET                           /00446701/ [Suspect]
     Active Substance: ACETAMINOPHEN\OXYCODONE HYDROCHLORIDE\OXYCODONE TEREPHTHALATE
     Indication: INJECTION SITE PAIN
     Route: 048
  2. REBIF [Suspect]
     Active Substance: INTERFERON BETA-1A
     Route: 058
     Dates: start: 20150101
  3. REBIF [Suspect]
     Active Substance: INTERFERON BETA-1A
     Indication: MULTIPLE SCLEROSIS
     Route: 058
     Dates: start: 20080101

REACTIONS (13)
  - Pain [Not Recovered/Not Resolved]
  - Injection site warmth [Not Recovered/Not Resolved]
  - Injection site pain [Recovering/Resolving]
  - Gallbladder disorder [Unknown]
  - Injection site injury [Recovering/Resolving]
  - Gait disturbance [Recovering/Resolving]
  - Dysstasia [Recovering/Resolving]
  - Drug dose omission [Not Recovered/Not Resolved]
  - Nausea [Recovered/Resolved]
  - Injection site erythema [Recovering/Resolving]
  - Chemical burn [Recovering/Resolving]
  - Injection site nodule [Not Recovered/Not Resolved]
  - Incorrect route of drug administration [Unknown]

NARRATIVE: CASE EVENT DATE: 201807
